FAERS Safety Report 12089993 (Version 2)
Quarter: 2016Q2

REPORT INFORMATION
  Report Type: Report from Study
  Country: JP (occurrence: JP)
  Receive Date: 20160218
  Receipt Date: 20160411
  Transmission Date: 20160815
  Serious: Yes (Death, Hospitalization)
  Sender: FDA-Public Use
  Company Number: PHJP2015JP021841

PATIENT
  Age: 67 Year
  Sex: Female
  Weight: 48 kg

DRUGS (1)
  1. PAZOPANIB [Suspect]
     Active Substance: PAZOPANIB
     Indication: ALVEOLAR RHABDOMYOSARCOMA
     Dosage: 800 MG, QD
     Route: 048
     Dates: start: 20141004, end: 20150301

REACTIONS (12)
  - Chromaturia [Unknown]
  - Jaundice [Unknown]
  - Abdominal pain upper [Recovered/Resolved]
  - Hypertension [Recovered/Resolved]
  - Ascites [Unknown]
  - Malignant neoplasm progression [Fatal]
  - Bile duct stenosis [Recovering/Resolving]
  - Metastases to pancreas [Not Recovered/Not Resolved]
  - Jaundice cholestatic [Recovering/Resolving]
  - Proteinuria [Not Recovered/Not Resolved]
  - Hepatic function abnormal [Not Recovered/Not Resolved]
  - Alanine aminotransferase increased [Not Recovered/Not Resolved]

NARRATIVE: CASE EVENT DATE: 20141020
